FAERS Safety Report 4834626-8 (Version None)
Quarter: 2005Q4

REPORT INFORMATION
  Report Type: 
  Country: None (occurrence: None)
  Receive Date: 20051122
  Receipt Date: 20050524
  Transmission Date: 20060501
  Serious: No
  Sender: FDA-Public Use
  Company Number: US-BRISTOL-MYERS SQUIBB COMPANY-12980215

PATIENT
  Age: 76 Year
  Sex: Female
  Weight: 57 kg

DRUGS (8)
  1. PRAVACHOL [Suspect]
     Indication: BLOOD CHOLESTEROL INCREASED
     Dates: start: 20050503
  2. DIOVAN [Concomitant]
  3. TOPROL-XL [Concomitant]
  4. ASPIRIN [Concomitant]
  5. VITAMIN E [Concomitant]
  6. EVENING PRIMROSE OIL [Concomitant]
  7. FOSAMAX [Concomitant]
  8. CENTRUM [Concomitant]

REACTIONS (4)
  - BACK PAIN [None]
  - CONSTIPATION [None]
  - COUGH [None]
  - OEDEMA PERIPHERAL [None]
